FAERS Safety Report 6852899-7 (Version None)
Quarter: 2010Q3

REPORT INFORMATION
  Report Type: 
  Country: None (occurrence: None)
  Receive Date: 20100717
  Receipt Date: 20071126
  Transmission Date: 20110219
  Serious: No
  Sender: FDA-Public Use
  Company Number: US-PFIZER INC-2007101099

PATIENT
  Sex: Male
  Weight: 77.2 kg

DRUGS (2)
  1. CHANTIX [Suspect]
     Indication: SMOKING CESSATION THERAPY
     Route: 048
     Dates: start: 20070401, end: 20070401
  2. BENADRYL [Concomitant]
     Indication: HYPERSENSITIVITY
     Route: 048

REACTIONS (6)
  - CONSTIPATION [None]
  - FLATULENCE [None]
  - NAUSEA [None]
  - NIGHTMARE [None]
  - SEDATION [None]
  - VOMITING [None]
